FAERS Safety Report 24285718 (Version 1)
Quarter: 2024Q3

REPORT INFORMATION
  Report Type: Spontaneous
  Country: CZ (occurrence: CZ)
  Receive Date: 20240905
  Receipt Date: 20240905
  Transmission Date: 20241016
  Serious: Yes (Hospitalization, Other)
  Sender: ROCHE
  Company Number: CZ-ROCHE-10000070930

PATIENT
  Sex: Female

DRUGS (1)
  1. OCREVUS [Suspect]
     Active Substance: OCRELIZUMAB
     Indication: Product used for unknown indication
     Dosage: LAST ADMINISTRATION ON 14/MAR/2024
     Route: 065
     Dates: start: 20210817

REACTIONS (3)
  - Urinary tract infection [Unknown]
  - Genital infection female [Unknown]
  - Neutropenia [Unknown]
